FAERS Safety Report 8269414-6 (Version None)
Quarter: 2012Q2

REPORT INFORMATION
  Report Type: 
  Country: None (occurrence: None)
  Receive Date: 20120409
  Receipt Date: 20120216
  Transmission Date: 20120825
  Serious: Yes (Other)
  Sender: FDA-Public Use
  Company Number: US-ASTRAZENECA-2012SE11315

PATIENT
  Age: 70 Year
  Sex: Male

DRUGS (2)
  1. UNKNOWN [Concomitant]
  2. BRILINTA [Suspect]
     Indication: CHEST PAIN
     Route: 048
     Dates: start: 20120208, end: 20120210

REACTIONS (1)
  - DYSPNOEA [None]
